FAERS Safety Report 19881260 (Version 1)
Quarter: 2021Q3

REPORT INFORMATION
  Report Type: Spontaneous
  Country: JP (occurrence: JP)
  Receive Date: 20210924
  Receipt Date: 20210924
  Transmission Date: 20211014
  Serious: Yes (Hospitalization)
  Sender: FDA-Public Use
  Company Number: JP-BAYER-2021A214943

PATIENT
  Age: 64 Year
  Sex: Female

DRUGS (8)
  1. CIPROXAN 200 MG [Suspect]
     Active Substance: CIPROFLOXACIN
     Dosage: DAILY DOSE 1200 MG
     Route: 048
  2. CIPROXAN?I.V.400 [Suspect]
     Active Substance: CIPROFLOXACIN
     Dosage: DAILY DOSE 800 MG
     Route: 042
  3. LANSOPRAZOLE. [Concomitant]
     Active Substance: LANSOPRAZOLE
  4. CANDESARTAN. [Concomitant]
     Active Substance: CANDESARTAN
  5. EDOXABAN [Concomitant]
     Active Substance: EDOXABAN TOSYLATE
  6. BISOPROLOL FUMARATE. [Concomitant]
     Active Substance: BISOPROLOL FUMARATE
  7. AMLODIPINE [Concomitant]
     Active Substance: AMLODIPINE BESYLATE
  8. DOXAZOSIN [Concomitant]
     Active Substance: DOXAZOSIN MESYLATE

REACTIONS (1)
  - Pathogen resistance [Recovered/Resolved]
